FAERS Safety Report 10693128 (Version 1)
Quarter: 2015Q1

REPORT INFORMATION
  Report Type: Spontaneous
  Country: SE (occurrence: SE)
  Receive Date: 20150106
  Receipt Date: 20150106
  Transmission Date: 20150720
  Serious: Yes (Hospitalization, Other)
  Sender: FDA-Public Use
  Company Number: SE-PFIZER INC-2014361721

PATIENT
  Age: 70 Year
  Sex: Male

DRUGS (16)
  1. BEHEPAN [Concomitant]
     Active Substance: HYDROXOCOBALAMIN
     Dosage: UNK
  2. SPIRONOLACTONE. [Concomitant]
     Active Substance: SPIRONOLACTONE
     Dosage: UNK
  3. FURIX [Concomitant]
     Active Substance: FUROSEMIDE
     Dosage: UNK
  4. SPIRIVA [Concomitant]
     Active Substance: TIOTROPIUM BROMIDE MONOHYDRATE
     Dosage: UNK
  5. ZOPICLONE [Concomitant]
     Active Substance: ZOPICLONE
     Dosage: UNK
  6. ALLOPURINOL ^NYCOMED^ [Suspect]
     Active Substance: ALLOPURINOL
     Dosage: 300 MG, 2X/DAY
     Route: 048
     Dates: start: 20141111, end: 20141203
  7. SOBRIL [Concomitant]
     Active Substance: OXAZEPAM
     Dosage: UNK
  8. AMIMOX [Suspect]
     Active Substance: AMOXICILLIN
     Indication: UPPER RESPIRATORY TRACT INFECTION
     Dosage: 500 MG, 3X/DAY
     Route: 048
     Dates: start: 20140926, end: 20141002
  9. DALACIN [Suspect]
     Active Substance: CLINDAMYCIN\CLINDAMYCIN PHOSPHATE
     Indication: ERYSIPELAS
     Dosage: 300 MG, 2X/DAY
     Route: 048
     Dates: start: 20141021, end: 20141031
  10. SYMBICORT [Concomitant]
     Active Substance: BUDESONIDE\FORMOTEROL FUMARATE DIHYDRATE
     Dosage: UNK
  11. OMEPRAZOLE. [Concomitant]
     Active Substance: OMEPRAZOLE
     Dosage: UNK
  12. RAMIPRIL. [Concomitant]
     Active Substance: RAMIPRIL
     Dosage: UNK
  13. SIMVASTATIN. [Concomitant]
     Active Substance: SIMVASTATIN
     Dosage: UNK
  14. BISOPROLOL [Concomitant]
     Active Substance: BISOPROLOL
     Dosage: UNK
  15. WARAN [Concomitant]
     Active Substance: WARFARIN SODIUM
     Dosage: UNK
  16. DIGOXIN. [Concomitant]
     Active Substance: DIGOXIN
     Dosage: UNK

REACTIONS (5)
  - Erythema multiforme [Not Recovered/Not Resolved]
  - Eosinophilia [Not Recovered/Not Resolved]
  - Renal failure [Not Recovered/Not Resolved]
  - Eczema nummular [Recovered/Resolved]
  - Drug reaction with eosinophilia and systemic symptoms [Not Recovered/Not Resolved]

NARRATIVE: CASE EVENT DATE: 2014
